FAERS Safety Report 5866812-2 (Version None)
Quarter: 2008Q3

REPORT INFORMATION
  Report Type: 
  Country: None (occurrence: None)
  Receive Date: 20080827
  Receipt Date: 20080818
  Transmission Date: 20090109
  Serious: Yes (Other)
  Sender: FDA-Public Use
  Company Number: 2008AP000222

PATIENT
  Age: 14 Year
  Sex: Female

DRUGS (15)
  1. PAROXETINE HCL [Suspect]
     Indication: DEPRESSION
     Dosage: SEE IMAGE
     Route: 048
     Dates: start: 20000314, end: 20001101
  2. PAROXETINE HCL [Suspect]
     Indication: DEPRESSION
     Dosage: SEE IMAGE
     Route: 048
     Dates: start: 20001115, end: 20011022
  3. PAROXETINE HCL [Suspect]
     Indication: DEPRESSION
     Dosage: SEE IMAGE
     Route: 048
     Dates: end: 20030728
  4. PAROXETINE HCL [Suspect]
     Indication: DEPRESSION
     Dosage: SEE IMAGE
     Route: 048
     Dates: end: 20031209
  5. PAROXETINE HCL [Suspect]
     Indication: DEPRESSION
     Dosage: SEE IMAGE
     Route: 048
     Dates: start: 20030514, end: 20040601
  6. PAROXETINE HCL [Suspect]
     Indication: DEPRESSION
     Dosage: SEE IMAGE
     Route: 048
     Dates: start: 19991215
  7. PAROXETINE HCL [Suspect]
     Indication: DEPRESSION
     Dosage: SEE IMAGE
     Route: 048
     Dates: start: 20030514
  8. PAROXETINE HCL [Suspect]
     Indication: DEPRESSION
     Dosage: SEE IMAGE
     Route: 048
     Dates: start: 20030601
  9. PAROXETINE HCL [Suspect]
     Indication: DEPRESSION
     Dosage: SEE IMAGE
     Route: 048
     Dates: start: 20030602
  10. PAROXETINE HCL [Suspect]
     Indication: DEPRESSION
     Dosage: SEE IMAGE
     Route: 048
     Dates: start: 20030814
  11. PAROXETINE HCL [Suspect]
     Indication: DEPRESSION
     Dosage: SEE IMAGE
     Route: 048
     Dates: start: 20031009
  12. PAROXETINE HCL [Suspect]
     Indication: DEPRESSION
     Dosage: SEE IMAGE
     Route: 048
     Dates: start: 20040903
  13. CANNABIS (CANNABIS) [Concomitant]
  14. VENLAFAXINE HCL [Concomitant]
  15. TEMAZEPAM [Concomitant]

REACTIONS (28)
  - ABSCESS LIMB [None]
  - ADVERSE DRUG REACTION [None]
  - AGGRESSION [None]
  - ANGER [None]
  - ANXIETY [None]
  - DEPRESSION [None]
  - DIZZINESS [None]
  - DRUG WITHDRAWAL SYNDROME [None]
  - DYSSTASIA [None]
  - FATIGUE [None]
  - FEELING ABNORMAL [None]
  - GAIT DISTURBANCE [None]
  - HALLUCINATION, AUDITORY [None]
  - HEADACHE [None]
  - HYPERACUSIS [None]
  - INTENTIONAL OVERDOSE [None]
  - INTENTIONAL SELF-INJURY [None]
  - MALAISE [None]
  - NAUSEA [None]
  - PARAESTHESIA [None]
  - SEROTONIN SYNDROME [None]
  - STRESS [None]
  - SUICIDAL IDEATION [None]
  - SUICIDE ATTEMPT [None]
  - TINNITUS [None]
  - VISION BLURRED [None]
  - VOMITING [None]
  - WEIGHT DECREASED [None]
